FAERS Safety Report 8738948 (Version 2)
Quarter: 2012Q4

REPORT INFORMATION
  Report Type: 
  Country: US (occurrence: US)
  Receive Date: 20120823
  Receipt Date: 20120912
  Transmission Date: 20130627
  Serious: Yes (Other)
  Sender: FDA-Public Use
  Company Number: US-PFIZER INC-2012202463

PATIENT
  Age: 57 Year
  Sex: Female
  Weight: 131.5 kg

DRUGS (8)
  1. LYRICA [Suspect]
     Indication: FIBROMYALGIA
     Dosage: 50 mg, 1x/day
     Route: 048
     Dates: start: 2012, end: 201206
  2. LYRICA [Suspect]
     Dosage: 100 mg, 3x/day
     Route: 048
     Dates: start: 201206
  3. BUPROPION [Concomitant]
     Dosage: UNK
  4. DICYCLOMINE [Concomitant]
     Dosage: UNK
  5. DEXILANT [Concomitant]
     Dosage: UNK
  6. VITAMIN D [Concomitant]
     Dosage: 50000 IU, weekly
  7. MELOXICAM [Concomitant]
     Dosage: UNK
  8. VITAMIN B12 [Concomitant]
     Dosage: UNK

REACTIONS (8)
  - Pleural effusion [Not Recovered/Not Resolved]
  - Weight increased [Not Recovered/Not Resolved]
  - Liver function test abnormal [Not Recovered/Not Resolved]
  - Liver disorder [Not Recovered/Not Resolved]
  - Bone disorder [Not Recovered/Not Resolved]
  - Chest discomfort [Not Recovered/Not Resolved]
  - Oedema peripheral [Not Recovered/Not Resolved]
  - Drug ineffective [Not Recovered/Not Resolved]
